FAERS Safety Report 25174593 (Version 1)
Quarter: 2025Q2

REPORT INFORMATION
  Report Type: Spontaneous
  Country: ES (occurrence: ES)
  Receive Date: 20250408
  Receipt Date: 20250408
  Transmission Date: 20250717
  Serious: Yes (Hospitalization)
  Sender: PFIZER
  Company Number: None

PATIENT
  Age: 31 Year
  Sex: Male

DRUGS (7)
  1. METHOTREXATE SODIUM [Suspect]
     Active Substance: METHOTREXATE SODIUM
     Indication: T-cell type acute leukaemia
     Dosage: 1.86 G, DAILY
     Route: 042
     Dates: start: 20130513, end: 20130513
  2. CYTARABINE [Suspect]
     Active Substance: CYTARABINE
     Indication: T-cell type acute leukaemia
     Dosage: 1.16 G, DAILY
     Route: 042
     Dates: start: 20130514, end: 20130515
  3. ACYCLOVIR [Concomitant]
     Active Substance: ACYCLOVIR
     Indication: Prophylaxis
     Dosage: 800 MG, 2X/DAY
     Route: 048
     Dates: start: 20130512
  4. BROMAZEPAM [Concomitant]
     Active Substance: BROMAZEPAM
     Indication: Insomnia
     Dosage: 1.5 MG, AT 23 H
     Route: 048
     Dates: start: 20130512
  5. FUROSEMIDE [Concomitant]
     Active Substance: FUROSEMIDE
     Dosage: 20 MG EVERY 8 HOURS
     Route: 042
     Dates: start: 20130512
  6. ONDANSETRON [Concomitant]
     Active Substance: ONDANSETRON
     Indication: Vomiting
     Dosage: 8 MG, EVERY 8 H
     Route: 042
     Dates: start: 20130512
  7. SULFAMETHOXAZOLE\TRIMETHOPRIM [Concomitant]
     Active Substance: SULFAMETHOXAZOLE\TRIMETHOPRIM
     Indication: Antibiotic prophylaxis
     Dosage: 1-0-1
     Route: 048
     Dates: start: 201301

REACTIONS (3)
  - Hepatitis acute [Recovered/Resolved]
  - Toxic skin eruption [Recovered/Resolved]
  - Deafness [Recovering/Resolving]

NARRATIVE: CASE EVENT DATE: 20130516
